FAERS Safety Report 8062215-3 (Version None)
Quarter: 2012Q1

REPORT INFORMATION
  Report Type: 
  Country: None (occurrence: None)
  Receive Date: 20120120
  Receipt Date: 20120120
  Transmission Date: 20120608
  Serious: No
  Sender: FDA-Public Use
  Company Number: None

PATIENT
  Sex: Female

DRUGS (1)
  1. VICTRELIS [Suspect]
     Dosage: 800MG TID PO
     Route: 048
     Dates: start: 20111129

REACTIONS (2)
  - PRODUCT QUALITY ISSUE [None]
  - CAPSULE PHYSICAL ISSUE [None]
